FAERS Safety Report 18238079 (Version 3)
Quarter: 2020Q4

REPORT INFORMATION
  Report Type: Spontaneous
  Country: MX (occurrence: MX)
  Receive Date: 20200907
  Receipt Date: 20201030
  Transmission Date: 20210113
  Serious: Yes (Death, Other)
  Sender: FDA-Public Use
  Company Number: MX-CLINIGEN GROUP PLC/ CLINIGEN HEALTHCARE LTD-MX-CLGN-20-00401

PATIENT
  Age: 3 Year
  Sex: Female

DRUGS (2)
  1. CARDIOXANE [Suspect]
     Active Substance: DEXRAZOXANE HYDROCHLORIDE
     Indication: CARDIOVASCULAR EVENT PROPHYLAXIS
  2. L-ASPARAGINASE [Concomitant]
     Active Substance: ASPARAGINASE
     Indication: ACUTE LYMPHOCYTIC LEUKAEMIA

REACTIONS (5)
  - Off label use [Unknown]
  - Vomiting [Fatal]
  - Therapy interrupted [Unknown]
  - Disease progression [Fatal]
  - Internal haemorrhage [Fatal]

NARRATIVE: CASE EVENT DATE: 20200721
